FAERS Safety Report 12697476 (Version 1)
Quarter: 2016Q3

REPORT INFORMATION
  Report Type: Spontaneous
  Country: US (occurrence: US)
  Receive Date: 20160830
  Receipt Date: 20160830
  Transmission Date: 20161109
  Serious: No
  Sender: FDA-Public Use
  Company Number: US-PFIZER INC-2016407469

PATIENT
  Age: 56 Year
  Sex: Female

DRUGS (1)
  1. LYRICA [Suspect]
     Active Substance: PREGABALIN
     Dosage: UNK

REACTIONS (6)
  - Dyspnoea [Unknown]
  - Dizziness [Unknown]
  - Mental status changes [Unknown]
  - Drug intolerance [Unknown]
  - Confusional state [Unknown]
  - Drug hypersensitivity [Unknown]
